FAERS Safety Report 5150224-3 (Version None)
Quarter: 2006Q4

REPORT INFORMATION
  Report Type: 
  Country: None (occurrence: None)
  Receive Date: 20061114
  Receipt Date: 20061107
  Transmission Date: 20070319
  Serious: Yes (Hospitalization)
  Sender: FDA-Public Use
  Company Number: US-AMGEN-STX199443

PATIENT
  Sex: Female
  Weight: 133.9 kg

DRUGS (2)
  1. ENBREL [Suspect]
     Indication: ARTHRITIS
     Route: 058
     Dates: start: 20050501, end: 20060808
  2. METHOTREXATE [Suspect]
     Indication: ARTHRITIS
     Route: 058
     Dates: start: 20030101, end: 20060808

REACTIONS (2)
  - OPTIC NEURITIS RETROBULBAR [None]
  - PITUITARY TUMOUR BENIGN [None]
